FAERS Safety Report 9410268 (Version 1)
Quarter: 2013Q3

REPORT INFORMATION
  Report Type: Spontaneous
  Country: US (occurrence: US)
  Receive Date: 20130719
  Receipt Date: 20130719
  Transmission Date: 20140515
  Serious: Yes (Other)
  Sender: FDA-Public Use
  Company Number: US-PFIZER INC-2013211338

PATIENT
  Sex: Female

DRUGS (1)
  1. LYRICA [Suspect]
     Indication: NEURALGIA
     Dosage: 50 MG, 3X/DAY
     Route: 048
     Dates: start: 201303, end: 201306

REACTIONS (7)
  - Suicidal ideation [Unknown]
  - Depression [Unknown]
  - Restless legs syndrome [Unknown]
  - Weight increased [Unknown]
  - Increased appetite [Unknown]
  - Sleep disorder [Unknown]
  - Pain [Unknown]
